FAERS Safety Report 7288005-7 (Version None)
Quarter: 2011Q1

REPORT INFORMATION
  Report Type: 
  Country: None (occurrence: None)
  Receive Date: 20110211
  Receipt Date: 20110131
  Transmission Date: 20110831
  Serious: Yes (Hospitalization)
  Sender: FDA-Public Use
  Company Number: PHFR2011GB01046

PATIENT
  Sex: Male

DRUGS (1)
  1. CLOZARIL [Suspect]
     Dosage: 300 MG, UNK
     Dates: start: 20110127

REACTIONS (5)
  - HYPOKINESIA [None]
  - WRONG DRUG ADMINISTERED [None]
  - LETHARGY [None]
  - DIZZINESS [None]
  - DYSARTHRIA [None]
